FAERS Safety Report 13583485 (Version 1)
Quarter: 2017Q2

REPORT INFORMATION
  Report Type: Spontaneous
  Country: US (occurrence: US)
  Receive Date: 20170526
  Receipt Date: 20170526
  Transmission Date: 20170830
  Serious: No
  Sender: FDA-Public Use
  Company Number: US-SUN PHARMACEUTICAL INDUSTRIES LTD-2017US-138681

PATIENT
  Age: 68 Year
  Sex: Male

DRUGS (1)
  1. OXYCODONE [Suspect]
     Active Substance: OXYCODONE
     Indication: ANALGESIC THERAPY
     Route: 065

REACTIONS (4)
  - Drug ineffective [Unknown]
  - Insomnia [Unknown]
  - Intentional overdose [Unknown]
  - Inappropriate schedule of drug administration [Unknown]
